FAERS Safety Report 8555981 (Version 6)
Quarter: 2013Q1

REPORT INFORMATION
  Report Type: Report from Study
  Country: CA (occurrence: CA)
  Receive Date: 20120510
  Receipt Date: 20130307
  Transmission Date: 20140127
  Serious: Yes (Hospitalization, Other)
  Sender: FDA-Public Use
  Company Number: CA-BRISTOL-MYERS SQUIBB COMPANY-16202483

PATIENT
  Age: 72 Year
  Sex: Female
  Weight: 86.17 kg

DRUGS (17)
  1. ORENCIA [Suspect]
     Indication: RHEUMATOID ARTHRITIS
     Dosage: LASTDOSE20OCT11,15DEC11,16DEC11,7FEB12,6MAR12,13JUL12?INF:15,57-500MG-Q4WK,EXP:MA2014,SEP14,JL15
     Route: 042
     Dates: start: 201108
  2. LYRICA [Suspect]
     Dosage: ALSO TAKEN 150MG
  3. CYMBALTA [Suspect]
  4. PREDNISONE [Suspect]
     Dosage: ALSO TAKEN 15 MG
  5. ARAVA [Suspect]
  6. DILAUDID [Suspect]
  7. ALENDRONATE [Concomitant]
  8. ACETAMINOPHEN [Concomitant]
  9. OXYBUTYNIN [Concomitant]
  10. PRAMIPEXOLE HCL [Concomitant]
  11. NAPROXEN [Concomitant]
  12. NEXIUM [Concomitant]
  13. CALCIUM [Concomitant]
  14. ATENOLOL [Concomitant]
  15. AMILORIDE [Concomitant]
  16. CALCITONIN [Concomitant]
  17. HYDROMORPHONE [Concomitant]

REACTIONS (18)
  - Abdominal pain [Recovered/Resolved]
  - Vomiting [Recovered/Resolved]
  - Nausea [Recovered/Resolved]
  - Haemoglobin decreased [Unknown]
  - Intestinal obstruction [Unknown]
  - Inflammation [Unknown]
  - Bursitis [Unknown]
  - Diarrhoea [Not Recovered/Not Resolved]
  - Sleep apnoea syndrome [Unknown]
  - Asthenia [Unknown]
  - Weight decreased [Unknown]
  - Urinary tract infection [Not Recovered/Not Resolved]
  - Wound complication [Unknown]
  - Visual impairment [Unknown]
  - Onychoclasis [Unknown]
  - Tinnitus [Unknown]
  - Muscular weakness [Not Recovered/Not Resolved]
  - Musculoskeletal pain [Not Recovered/Not Resolved]
